FAERS Safety Report 11118167 (Version 1)
Quarter: 2015Q2

REPORT INFORMATION
  Report Type: Spontaneous
  Country: None (occurrence: None)
  Receive Date: 20150515
  Receipt Date: 20150515
  Transmission Date: 20150821
  Serious: Yes (Hospitalization)
  Sender: FDA-Public Use
  Company Number: None

PATIENT
  Age: 50 Year
  Sex: Female
  Weight: 109.1 kg

DRUGS (1)
  1. INVOKANA [Suspect]
     Active Substance: CANAGLIFLOZIN
     Indication: TYPE 2 DIABETES MELLITUS
     Dosage: 100MG ONCE DAILY ORALLY?1ST OR 2ND WEEK OF MARCH 2015 FOR A TOTAL OF ONE WEEK
     Route: 048
     Dates: start: 201503, end: 201503

REACTIONS (4)
  - Abdominal pain [None]
  - Musculoskeletal chest pain [None]
  - Abdominal pain upper [None]
  - Dyspnoea [None]

NARRATIVE: CASE EVENT DATE: 20150316
